FAERS Safety Report 16722627 (Version 1)
Quarter: 2019Q3

REPORT INFORMATION
  Report Type: Report from Study
  Country: None (occurrence: BR)
  Receive Date: 20190820
  Receipt Date: 20190820
  Transmission Date: 20191005
  Serious: Yes (Hospitalization, Other)
  Sender: FDA-Public Use
  Company Number: BR-ABBVIE-19K-020-2893485-00

PATIENT
  Age: 4 Month
  Sex: Female

DRUGS (3)
  1. SEPTRA [Concomitant]
     Active Substance: SULFAMETHOXAZOLE\TRIMETHOPRIM
     Indication: PRODUCT USED FOR UNKNOWN INDICATION
  2. SYNAGIS [Suspect]
     Active Substance: PALIVIZUMAB
     Indication: BRONCHOPULMONARY DYSPLASIA
     Route: 030
     Dates: start: 20190201
  3. COLIKIDS [Concomitant]
     Indication: ABDOMINAL PAIN

REACTIONS (6)
  - Bronchiolitis [Recovered/Resolved]
  - Seizure [Recovering/Resolving]
  - Respiratory disorder [Not Recovered/Not Resolved]
  - Epilepsy [Recovering/Resolving]
  - Painful respiration [Not Recovered/Not Resolved]
  - Atelectasis [Not Recovered/Not Resolved]

NARRATIVE: CASE EVENT DATE: 20190603
